FAERS Safety Report 26136430 (Version 1)
Quarter: 2025Q4

REPORT INFORMATION
  Report Type: Report from Study
  Country: US (occurrence: US)
  Receive Date: 20251209
  Receipt Date: 20251209
  Transmission Date: 20260117
  Serious: Yes (Hospitalization)
  Sender: ABBVIE
  Company Number: US-ABBVIE-6576680

PATIENT
  Age: 66 Year
  Sex: Male

DRUGS (1)
  1. UBRELVY [Suspect]
     Active Substance: UBROGEPANT
     Indication: Migraine
     Dosage: 100 MG TABLET -TAKE 1 TABLET BY MOUTH AT ONSET OF MIGRAINE NO MORE THAN 2 TABLETS PER DAY PRN.
     Route: 048

REACTIONS (3)
  - Pneumonia legionella [Unknown]
  - Myocardial infarction [Unknown]
  - Cardiac failure congestive [Unknown]

NARRATIVE: CASE EVENT DATE: 20250101
